FAERS Safety Report 22826580 (Version 2)
Quarter: 2023Q4

REPORT INFORMATION
  Report Type: Report from Study
  Country: CO (occurrence: CO)
  Receive Date: 20230816
  Receipt Date: 20231012
  Transmission Date: 20240110
  Serious: Yes (Hospitalization)
  Sender: FDA-Public Use
  Company Number: CO-002147023-NVSC2022CO184688

PATIENT
  Sex: Female

DRUGS (3)
  1. KISQALI [Suspect]
     Active Substance: RIBOCICLIB
     Indication: Hormone receptor positive HER2 negative breast cancer
     Dosage: 600 MG (FOR 21 DAYS, RESTS 7 DAYS)
     Route: 048
     Dates: start: 20220821
  2. KISQALI [Suspect]
     Active Substance: RIBOCICLIB
     Dosage: UNK, QD
     Route: 048
  3. OXYGEN [Concomitant]
     Active Substance: OXYGEN
     Indication: Product used for unknown indication
     Dosage: UNK
     Route: 065

REACTIONS (13)
  - Gait disturbance [Unknown]
  - Movement disorder [Unknown]
  - Hyperhidrosis [Unknown]
  - Hypertension [Unknown]
  - Pain in extremity [Unknown]
  - Vomiting [Unknown]
  - Tachycardia [Unknown]
  - Asthenia [Unknown]
  - General physical health deterioration [Unknown]
  - Lung disorder [Unknown]
  - Memory impairment [Unknown]
  - Illness [Unknown]
  - Malaise [Unknown]
